FAERS Safety Report 24372515 (Version 1)
Quarter: 2024Q3

REPORT INFORMATION
  Report Type: Spontaneous
  Country: US (occurrence: US)
  Receive Date: 20240927
  Receipt Date: 20240927
  Transmission Date: 20241017
  Serious: Yes (Death, Other)
  Sender: GENMAB
  Company Number: US-GENMAB-2024-03481

PATIENT

DRUGS (1)
  1. EPCORITAMAB [Suspect]
     Active Substance: EPCORITAMAB
     Dosage: UNK (STEP-UP DOSING)
     Route: 065

REACTIONS (3)
  - Condition aggravated [Fatal]
  - Tumour lysis syndrome [Unknown]
  - Cardiac disorder [Unknown]
